FAERS Safety Report 17125738 (Version 1)
Quarter: 2019Q4

REPORT INFORMATION
  Report Type: Spontaneous
  Country: US (occurrence: US)
  Receive Date: 20191208
  Receipt Date: 20191208
  Transmission Date: 20200122
  Serious: No
  Sender: FDA-Public Use
  Company Number: US-TARO-2019TAR00532

PATIENT
  Age: 65 Year
  Sex: Female
  Weight: 68.93 kg

DRUGS (10)
  1. FLUOROURACIL TOPICAL SOLUTION USP 5% [Suspect]
     Active Substance: FLUOROURACIL
     Dosage: ^A THIN FILM^, 2X/DAY
     Route: 061
     Dates: start: 20190629, end: 20190717
  2. MULTIVITAMIN [Concomitant]
     Active Substance: VITAMINS
  3. CINNAMON. [Concomitant]
     Active Substance: CINNAMON
  4. PRILOSEC [Concomitant]
     Active Substance: OMEPRAZOLE MAGNESIUM
     Dosage: UNK, 1X/DAY
  5. GLUCOSAMINE SULFATE [Concomitant]
     Active Substance: GLUCOSAMINE SULFATE
  6. MELOXICAM. [Concomitant]
     Active Substance: MELOXICAM
     Dosage: UNK, 1X/DAY
  7. CURCUMIN [Concomitant]
     Active Substance: CURCUMIN
  8. FLUOROURACIL TOPICAL SOLUTION USP 5% [Suspect]
     Active Substance: FLUOROURACIL
     Indication: NEOPLASM MALIGNANT
     Dosage: ^A THIN FILM^, 1X/DAY
     Route: 061
     Dates: start: 20190626, end: 20190628
  9. FISH OIL [Concomitant]
     Active Substance: FISH OIL
  10. VITAMIN D3 [Concomitant]
     Active Substance: CHOLECALCIFEROL

REACTIONS (5)
  - Off label use [Recovered/Resolved]
  - Scab [Recovered/Resolved]
  - Application site discolouration [Not Recovered/Not Resolved]
  - Product quality issue [Recovered/Resolved]
  - Application site erythema [Not Recovered/Not Resolved]

NARRATIVE: CASE EVENT DATE: 2019
